FAERS Safety Report 14476957 (Version 1)
Quarter: 2018Q1

REPORT INFORMATION
  Report Type: Report from Study
  Country: US (occurrence: US)
  Receive Date: 20180201
  Receipt Date: 20180201
  Transmission Date: 20180509
  Serious: No
  Sender: FDA-Public Use
  Company Number: US-EXELIXIS-CABO-17009841

PATIENT
  Sex: Male

DRUGS (15)
  1. FAMOTIDINE. [Concomitant]
     Active Substance: FAMOTIDINE
  2. PREDNISONE. [Concomitant]
     Active Substance: PREDNISONE
  3. GABAPENTIN. [Concomitant]
     Active Substance: GABAPENTIN
  4. MORPHINE [Concomitant]
     Active Substance: MORPHINE
  5. MAGNESIUM [Concomitant]
     Active Substance: MAGNESIUM
  6. PERCOCET [Concomitant]
     Active Substance: ACETAMINOPHEN\OXYCODONE HYDROCHLORIDE
  7. IRON [Concomitant]
     Active Substance: IRON
  8. LEVOTHYROXINE. [Concomitant]
     Active Substance: LEVOTHYROXINE
  9. METOPROLOL. [Concomitant]
     Active Substance: METOPROLOL
  10. CALCIUM [Concomitant]
     Active Substance: CALCIUM
  11. COMETRIQ [Suspect]
     Active Substance: CABOZANTINIB S-MALATE
     Indication: THYROID CANCER
     Dosage: 40 MG, QD
     Route: 048
     Dates: start: 20170708
  12. FENTANYL. [Concomitant]
     Active Substance: FENTANYL
  13. DIAZEPAM. [Concomitant]
     Active Substance: DIAZEPAM
  14. FOLIC ACID. [Concomitant]
     Active Substance: FOLIC ACID
  15. WARFARIN [Concomitant]
     Active Substance: WARFARIN

REACTIONS (4)
  - Myalgia [Unknown]
  - Muscle tightness [Unknown]
  - Muscle spasms [Not Recovered/Not Resolved]
  - Drug dose omission [Unknown]
